FAERS Safety Report 13284185 (Version 1)
Quarter: 2017Q1

REPORT INFORMATION
  Report Type: Spontaneous
  Country: US (occurrence: US)
  Receive Date: 20170301
  Receipt Date: 20170301
  Transmission Date: 20170428
  Serious: No
  Sender: FDA-Public Use
  Company Number: US-INSYS THERAPEUTICS, INC-INS201607-000344

PATIENT
  Age: 63 Year
  Sex: Male

DRUGS (2)
  1. SUBSYS [Suspect]
     Active Substance: FENTANYL
     Indication: B-CELL LYMPHOMA
     Route: 060
     Dates: start: 20160224
  2. SUBSYS [Suspect]
     Active Substance: FENTANYL
     Indication: NON-HODGKIN^S LYMPHOMA STAGE II

REACTIONS (4)
  - Sedation [Recovering/Resolving]
  - Night sweats [Recovering/Resolving]
  - Hallucination [Recovering/Resolving]
  - Nightmare [Recovering/Resolving]

NARRATIVE: CASE EVENT DATE: 20160709
